FAERS Safety Report 5695941-1 (Version None)
Quarter: 2008Q2

REPORT INFORMATION
  Report Type: 
  Country: None (occurrence: None)
  Receive Date: 20080407
  Receipt Date: 20080306
  Transmission Date: 20081010
  Serious: No
  Sender: FDA-Public Use
  Company Number: US-BAYER-200815363GPV

PATIENT
  Age: 76 Year
  Sex: Male
  Weight: 120 kg

DRUGS (7)
  1. SULAR [Suspect]
     Indication: HYPERTENSION
     Route: 048
     Dates: start: 20070914, end: 20071019
  2. SULAR [Suspect]
     Route: 048
     Dates: start: 20071020, end: 20071220
  3. PRAVACHOL [Concomitant]
     Indication: HYPERCHOLESTEROLAEMIA
     Route: 065
     Dates: start: 20030213, end: 20051001
  4. PRAVACHOL [Concomitant]
     Route: 065
     Dates: start: 20070502
  5. XALATAN [Concomitant]
     Indication: GLAUCOMA
     Route: 065
  6. INHALER NOS [Concomitant]
     Indication: CHRONIC OBSTRUCTIVE PULMONARY DISEASE
     Route: 065
  7. KLONADINE [Concomitant]
     Indication: DRUG USE FOR UNKNOWN INDICATION
     Route: 065
     Dates: start: 20080220

REACTIONS (2)
  - HYPERTENSION [None]
  - OEDEMA PERIPHERAL [None]
